FAERS Safety Report 8090252-1 (Version None)
Quarter: 2012Q1

REPORT INFORMATION
  Report Type: 
  Country: None (occurrence: None)
  Receive Date: 20120129
  Receipt Date: 20111108
  Transmission Date: 20120608
  Serious: No
  Sender: FDA-Public Use
  Company Number: US-ABBOTT-11P-163-0872446-00

PATIENT
  Age: 39 Year
  Sex: Female

DRUGS (5)
  1. VITAMIN D [Concomitant]
     Indication: VITAMIN D DECREASED
  2. UNKNOWN MEDICATION [Concomitant]
     Indication: ABDOMINAL PAIN UPPER
  3. HUMIRA [Suspect]
     Indication: CROHN'S DISEASE
     Dates: start: 20110914
  4. LIALDA [Concomitant]
     Indication: CROHN'S DISEASE
  5. BENTYL [Concomitant]
     Indication: ABDOMINAL PAIN UPPER

REACTIONS (7)
  - HEADACHE [None]
  - INJECTION SITE PAIN [None]
  - NASOPHARYNGITIS [None]
  - COUGH [None]
  - INJECTION SITE SWELLING [None]
  - INJECTION SITE HAEMATOMA [None]
  - NASAL CONGESTION [None]
